FAERS Safety Report 5963621-0 (Version None)
Quarter: 2008Q4

REPORT INFORMATION
  Report Type: 
  Country: None (occurrence: None)
  Receive Date: 20081124
  Receipt Date: 20081112
  Transmission Date: 20090506
  Serious: Yes (Death, Hospitalization)
  Sender: FDA-Public Use
  Company Number: ES-ROCHE-591884

PATIENT
  Age: 44 Year
  Sex: Male

DRUGS (7)
  1. PEGASYS [Suspect]
     Dosage: DOSAGE FORM REPORTED AS: PREFILLED SYRINGE.
     Route: 058
     Dates: start: 20080121, end: 20080720
  2. COPEGUS [Suspect]
     Dosage: DOSAGE FORM REPORTED: FILM COATED TABLET.
     Route: 048
     Dates: start: 20080121, end: 20080720
  3. METHADONE HCL [Suspect]
     Route: 048
     Dates: start: 20070927, end: 20080720
  4. MYAMBUTOL [Suspect]
     Indication: PULMONARY TUBERCULOSIS
     Route: 048
     Dates: start: 20080710, end: 20080720
  5. REXER [Suspect]
     Dosage: DOSAGE FORM: ORALLY DISINTEGRATING TABLET. DRUG RPORTED AS: REXER FLAS.
     Route: 048
     Dates: start: 20070927, end: 20080720
  6. RIFATER [Suspect]
     Indication: PULMONARY TUBERCULOSIS
     Dosage: DOSAGE FORM: COATED TABLET. DOSE: ^1 COMMON DOSE/DAY^
     Route: 048
     Dates: start: 20080710, end: 20080720
  7. TRANKIMAZIN [Suspect]
     Route: 048
     Dates: start: 20070927, end: 20080720

REACTIONS (4)
  - ACIDOSIS [None]
  - MALAISE [None]
  - NAUSEA [None]
  - VOMITING [None]
